FAERS Safety Report 6274947-8 (Version None)
Quarter: 2009Q3

REPORT INFORMATION
  Report Type: 
  Country: None (occurrence: None)
  Receive Date: 20090721
  Receipt Date: 20090713
  Transmission Date: 20100115
  Serious: Yes (Hospitalization)
  Sender: FDA-Public Use
  Company Number: AU-ASTRAZENECA-2009SE04652

PATIENT
  Age: 62 Year
  Sex: Female

DRUGS (2)
  1. SEROQUEL [Suspect]
     Indication: DEPRESSION
     Dosage: LONG TERM
     Route: 048
  2. MIRTAZAPINE [Suspect]
     Route: 048

REACTIONS (1)
  - NEUTROPENIA [None]
